FAERS Safety Report 25624997 (Version 2)
Quarter: 2025Q3

REPORT INFORMATION
  Report Type: Spontaneous
  Country: QA (occurrence: QA)
  Receive Date: 20250731
  Receipt Date: 20250806
  Transmission Date: 20251020
  Serious: Yes (Hospitalization, Other)
  Sender: ENDO
  Company Number: QA-ENDO USA, INC.-2025-001679

PATIENT
  Age: 43 Year
  Sex: Female
  Weight: 45 kg

DRUGS (7)
  1. BENZTROPINE MESYLATE [Suspect]
     Active Substance: BENZTROPINE MESYLATE
     Indication: Extrapyramidal disorder
     Route: 065
  2. BENZTROPINE MESYLATE [Suspect]
     Active Substance: BENZTROPINE MESYLATE
     Route: 065
  3. ARIPIPRAZOLE [Suspect]
     Active Substance: ARIPIPRAZOLE
     Indication: Hyperprolactinaemia
     Route: 065
  4. ARIPIPRAZOLE [Suspect]
     Active Substance: ARIPIPRAZOLE
     Route: 065
  5. PALIPERIDONE [Concomitant]
     Active Substance: PALIPERIDONE
     Indication: Schizophrenia
     Route: 030
  6. PALIPERIDONE [Concomitant]
     Active Substance: PALIPERIDONE
     Route: 051
  7. PALIPERIDONE [Concomitant]
     Active Substance: PALIPERIDONE
     Route: 051

REACTIONS (3)
  - Faecaloma [Recovered/Resolved]
  - Colitis ischaemic [Recovered/Resolved]
  - Potentiating drug interaction [Recovered/Resolved]
